FAERS Safety Report 5495203-1 (Version None)
Quarter: 2007Q4

REPORT INFORMATION
  Report Type: 
  Country: None (occurrence: None)
  Receive Date: 20071024
  Receipt Date: 20071012
  Transmission Date: 20080405
  Serious: Yes (Hospitalization)
  Sender: FDA-Public Use
  Company Number: DE-PFIZER INC-2007081911

PATIENT
  Sex: Female
  Weight: 60 kg

DRUGS (1)
  1. SU-011,248 [Suspect]
     Indication: METASTATIC RENAL CELL CARCINOMA
     Route: 048
     Dates: start: 20070616, end: 20070712

REACTIONS (5)
  - ANAEMIA [None]
  - HYPOKALAEMIA [None]
  - JAUNDICE [None]
  - LEUKOPENIA [None]
  - TUMOUR HAEMORRHAGE [None]
